FAERS Safety Report 7296518-7 (Version None)
Quarter: 2011Q1

REPORT INFORMATION
  Report Type: 
  Country: None (occurrence: None)
  Receive Date: 20110216
  Receipt Date: 20110203
  Transmission Date: 20110831
  Serious: Yes (Other)
  Sender: FDA-Public Use
  Company Number: PHHY2011DE09559

PATIENT
  Age: 75 Year
  Sex: Female

DRUGS (3)
  1. THYROID GLAND MEDICATION [Concomitant]
  2. EXFORGE HCT [Suspect]
     Indication: HYPERTENSION
     Dosage: 5/160/ 12.5 MG, 1 TAB IN THE MORN.
     Route: 048
     Dates: start: 20100101
  3. PANCREAS MEDICATION [Concomitant]

REACTIONS (7)
  - AORTIC RUPTURE [None]
  - VISION BLURRED [None]
  - DIZZINESS [None]
  - BLOOD PRESSURE INCREASED [None]
  - MALAISE [None]
  - DRUG INTOLERANCE [None]
  - CARDIOVASCULAR INSUFFICIENCY [None]
